FAERS Safety Report 8276620-3 (Version None)
Quarter: 2012Q2

REPORT INFORMATION
  Report Type: 
  Country: None (occurrence: None)
  Receive Date: 20120412
  Receipt Date: 20120412
  Transmission Date: 20120825
  Serious: Yes (Other)
  Sender: FDA-Public Use
  Company Number: AU-B.I. PHARMACEUTICALS,INC./RIDGEFIELD-2012-AU-00180AU

PATIENT
  Sex: Female

DRUGS (6)
  1. PRADAXA [Suspect]
     Indication: ATRIAL FIBRILLATION
  2. ATENOLOL [Concomitant]
     Dosage: 50 MG
  3. LIPITOR [Concomitant]
     Dosage: 20 MG
  4. LEVOTHYROXINE SODIUM [Concomitant]
     Dosage: 100 MG
  5. PANADOL OSTEO [Concomitant]
     Dosage: 4 DAILY
  6. PRADAXA [Suspect]
     Indication: CEREBROVASCULAR ACCIDENT PROPHYLAXIS
     Dosage: 300 MG
     Dates: start: 20110101, end: 20120124

REACTIONS (1)
  - HEPATIC ENZYME INCREASED [None]
